FAERS Safety Report 9796619 (Version 4)
Quarter: 2018Q4

REPORT INFORMATION
  Report Type: Spontaneous
  Country: US (occurrence: US)
  Receive Date: 20140103
  Receipt Date: 20181220
  Transmission Date: 20190205
  Serious: Yes (Other)
  Sender: FDA-Public Use
  Company Number: US-TEVA-454009USA

PATIENT
  Age: 31 Year
  Sex: Female
  Weight: 108.96 kg

DRUGS (2)
  1. PARAGARD T 380A [Suspect]
     Active Substance: COPPER
     Indication: CONTRACEPTION
     Route: 015
     Dates: start: 20130123, end: 20130517
  2. SPRINTEC [Concomitant]
     Active Substance: ETHINYL ESTRADIOL\NORGESTIMATE
     Dosage: 1  DAILY; 0.25-35 MG-MCG
     Dates: end: 20130220

REACTIONS (23)
  - Drug ineffective [Recovered/Resolved]
  - Adrenal insufficiency [Unknown]
  - Hot flush [Unknown]
  - Vomiting [Unknown]
  - Live birth [Unknown]
  - Menorrhagia [Unknown]
  - Muscle spasms [Recovering/Resolving]
  - Pain [Unknown]
  - Urinary tract infection [Unknown]
  - Nausea [Unknown]
  - Malaise [Unknown]
  - Swelling [Recovering/Resolving]
  - Flank pain [Unknown]
  - Hypoaesthesia [Unknown]
  - Maternal exposure during pregnancy [Unknown]
  - Road traffic accident [Unknown]
  - Hypotension [Unknown]
  - Weight increased [Unknown]
  - Abdominal pain lower [Recovering/Resolving]
  - Anxiety [Unknown]
  - Pregnancy with contraceptive device [Recovered/Resolved]
  - Caesarean section [Unknown]
  - Cystitis [Unknown]

NARRATIVE: CASE EVENT DATE: 2013
